FAERS Safety Report 10102831 (Version 1)
Quarter: 2014Q2

REPORT INFORMATION
  Report Type: Spontaneous
  Country: US (occurrence: US)
  Receive Date: 20140424
  Receipt Date: 20140424
  Transmission Date: 20141212
  Serious: No
  Sender: FDA-Public Use
  Company Number: US-BRISTOL-MYERS SQUIBB COMPANY-20564571

PATIENT
  Age: 9 Decade
  Sex: 0

DRUGS (1)
  1. ELIQUIS [Suspect]
     Dosage: REDUCED:2.5MG/BID

REACTIONS (2)
  - Epistaxis [Unknown]
  - Contusion [Unknown]
